FAERS Safety Report 8481580-6 (Version None)
Quarter: 2012Q3

REPORT INFORMATION
  Report Type: 
  Country: None (occurrence: None)
  Receive Date: 20120702
  Receipt Date: 20120622
  Transmission Date: 20120928
  Serious: Yes (Hospitalization, Other)
  Sender: FDA-Public Use
  Company Number: US-BAYER-2012-050218

PATIENT
  Age: 64 Year
  Sex: Male
  Weight: 59.864 kg

DRUGS (7)
  1. NEXAVAR [Suspect]
     Dosage: 400 MG, BID
  2. DIURETICS [Concomitant]
     Dosage: DAILY
  3. NEXAVAR [Suspect]
     Dosage: 200 MG, BID
  4. HYDROCODONE [Concomitant]
     Dosage: PRN
  5. POTASSIUM [Concomitant]
     Route: 048
  6. NEXAVAR [Suspect]
     Indication: HEPATIC NEOPLASM MALIGNANT
     Dosage: 200 MG, BID
     Dates: start: 20120424
  7. ANTI-DIARRHEAL [Concomitant]
     Dosage: PRN

REACTIONS (13)
  - ABDOMINAL PAIN UPPER [None]
  - DIARRHOEA [None]
  - SWELLING [None]
  - ASTHENIA [None]
  - NAUSEA [None]
  - OEDEMA PERIPHERAL [None]
  - PAIN [None]
  - VOMITING [None]
  - DYSPNOEA [None]
  - ASCITES [None]
  - ABDOMINAL DISCOMFORT [None]
  - MUSCLE SPASMS [None]
  - WEIGHT DECREASED [None]
